FAERS Safety Report 8877533 (Version 2)
Quarter: 2012Q4

REPORT INFORMATION
  Report Type: 
  Country: VE (occurrence: VE)
  Receive Date: 20121024
  Receipt Date: 20121123
  Transmission Date: 20130627
  Serious: Yes (Death)
  Sender: FDA-Public Use
  Company Number: VE-PFIZER INC-2012264912

PATIENT
  Age: 63 Year
  Sex: Female

DRUGS (1)
  1. NORVASC [Suspect]
     Indication: HYPERTENSION ARTERIAL
     Dosage: UNK
     Route: 048

REACTIONS (1)
  - Cervix carcinoma [Fatal]
